FAERS Safety Report 10652290 (Version 1)
Quarter: 2014Q4

REPORT INFORMATION
  Report Type: Spontaneous
  Country: US (occurrence: None)
  Receive Date: 20141212
  Receipt Date: 20141212
  Transmission Date: 20150529
  Serious: Yes (Other)
  Sender: FDA-Public Use
  Company Number: None

PATIENT
  Age: 55 Year
  Sex: Female
  Weight: 90.72 kg

DRUGS (5)
  1. BENICAR [Concomitant]
     Active Substance: OLMESARTAN MEDOXOMIL
  2. DIETHYLPROPION [Suspect]
     Active Substance: DIETHYLPROPION
     Indication: OBESITY
     Route: 048
     Dates: start: 20130417, end: 20140417
  3. LEVEMIR [Concomitant]
     Active Substance: INSULIN DETEMIR
  4. LIPITOR [Concomitant]
     Active Substance: ATORVASTATIN CALCIUM
  5. JANUMET [Concomitant]
     Active Substance: METFORMIN HYDROCHLORIDE\SITAGLIPTIN PHOSPHATE

REACTIONS (1)
  - Loss of libido [None]

NARRATIVE: CASE EVENT DATE: 20140417
